FAERS Safety Report 6297407-7 (Version None)
Quarter: 2009Q3

REPORT INFORMATION
  Report Type: 
  Country: None (occurrence: None)
  Receive Date: 20090804
  Receipt Date: 20090804
  Transmission Date: 20100115
  Serious: Yes (Other)
  Sender: FDA-Public Use
  Company Number: None

PATIENT
  Age: 90 Year
  Sex: Female
  Weight: 64.4108 kg

DRUGS (8)
  1. ASPIRIN [Suspect]
     Indication: ISCHAEMIC HEART DISEASE PROPHYLAXIS
     Dosage: 1 DF, UNK, ORAL 1 DF, UNK, ORAL
     Route: 048
     Dates: start: 20090201, end: 20090524
  2. ASPIRIN [Suspect]
     Indication: ISCHAEMIC HEART DISEASE PROPHYLAXIS
     Dosage: 1 DF, UNK, ORAL 1 DF, UNK, ORAL
     Route: 048
     Dates: start: 20090601, end: 20090615
  3. BENICAR [Concomitant]
  4. ATENOLOL [Concomitant]
  5. AMLODIPINE [Concomitant]
  6. INDAPAMIDE [Concomitant]
  7. FISH OIL [Concomitant]
  8. MULTI-VITAMIN [Concomitant]

REACTIONS (2)
  - VAGINAL DISCHARGE [None]
  - VAGINAL HAEMORRHAGE [None]
